FAERS Safety Report 5060847-8 (Version None)
Quarter: 2006Q3

REPORT INFORMATION
  Report Type: 
  Country: None (occurrence: None)
  Receive Date: 20060725
  Receipt Date: 20060718
  Transmission Date: 20061208
  Serious: Yes (Hospitalization)
  Sender: FDA-Public Use
  Company Number: FR-GLAXOSMITHKLINE-B0431395A

PATIENT
  Age: 64 Year
  Sex: Female
  Weight: 56 kg

DRUGS (6)
  1. LAMICTAL [Suspect]
     Indication: EPILEPSY
     Route: 048
     Dates: start: 20060422, end: 20060525
  2. DEPAKENE [Concomitant]
     Indication: EPILEPSY
     Route: 048
     Dates: end: 20060522
  3. CRESTOR [Concomitant]
     Dosage: 1TAB PER DAY
     Route: 048
     Dates: end: 20060522
  4. CLARITIN [Concomitant]
     Dosage: 10MG PER DAY
     Route: 048
  5. NIFLUGEL [Concomitant]
     Indication: TORTICOLLIS
     Route: 061
     Dates: start: 20060515, end: 20060525
  6. SUDAFED 12 HOUR [Concomitant]
     Route: 065
     Dates: start: 20060515

REACTIONS (6)
  - HYPERSENSITIVITY [None]
  - LYMPHADENOPATHY [None]
  - NECK PAIN [None]
  - PHARYNGOLARYNGEAL PAIN [None]
  - PYREXIA [None]
  - RASH MACULO-PAPULAR [None]
